FAERS Safety Report 17284466 (Version 1)
Quarter: 2020Q1

REPORT INFORMATION
  Report Type: Spontaneous
  Country: US (occurrence: US)
  Receive Date: 20200117
  Receipt Date: 20200117
  Transmission Date: 20200409
  Serious: Yes (Other)
  Sender: FDA-Public Use
  Company Number: US-ALMIRALL, LLC-2019AQU000616

PATIENT

DRUGS (1)
  1. SEYSARA [Suspect]
     Active Substance: SARECYCLINE HYDROCHLORIDE
     Indication: ACNE
     Route: 065

REACTIONS (3)
  - Papilloedema [Recovering/Resolving]
  - Vision blurred [Recovering/Resolving]
  - Intracranial pressure increased [Recovering/Resolving]
